FAERS Safety Report 9926142 (Version 1)
Quarter: 2014Q1

REPORT INFORMATION
  Report Type: Spontaneous
  Country: US (occurrence: US)
  Receive Date: 20140226
  Receipt Date: 20140226
  Transmission Date: 20141002
  Serious: No
  Sender: FDA-Public Use
  Company Number: US-009507513-1402USA011736

PATIENT
  Age: 66 Year
  Sex: Female

DRUGS (3)
  1. ISENTRESS [Suspect]
     Indication: HIV INFECTION
     Dosage: 1 TABLET EVERY 12 HOURS
     Route: 048
     Dates: start: 2009
  2. INTELENCE [Concomitant]
  3. ENOXAPARIN SODIUM [Concomitant]

REACTIONS (2)
  - Adverse reaction [Recovered/Resolved]
  - Feeling abnormal [Recovered/Resolved]
